FAERS Safety Report 7207873-8 (Version None)
Quarter: 2011Q1

REPORT INFORMATION
  Report Type: 
  Country: None (occurrence: None)
  Receive Date: 20110104
  Receipt Date: 20101221
  Transmission Date: 20110831
  Serious: Yes (Other)
  Sender: FDA-Public Use
  Company Number: GB-JNJFOC-20090701720

PATIENT
  Age: 8 Week
  Sex: Male

DRUGS (3)
  1. ASPIRIN [Suspect]
     Indication: PRODUCT USED FOR UNKNOWN INDICATION
  2. PARACETAMOL [Suspect]
     Route: 065
  3. PARACETAMOL [Suspect]
     Indication: ILL-DEFINED DISORDER
     Route: 065

REACTIONS (2)
  - PYLORIC STENOSIS [None]
  - DRUG EXPOSURE DURING PREGNANCY [None]
